FAERS Safety Report 17900322 (Version 2)
Quarter: 2020Q2

REPORT INFORMATION
  Report Type: Spontaneous
  Country: US (occurrence: US)
  Receive Date: 20200616
  Receipt Date: 20200617
  Transmission Date: 20200714
  Serious: No
  Sender: FDA-Public Use
  Company Number: US-PFIZER INC-2020232698

PATIENT
  Age: 78 Year
  Sex: Female
  Weight: 65.77 kg

DRUGS (1)
  1. IBRANCE [Suspect]
     Active Substance: PALBOCICLIB
     Indication: METASTASES TO BONE
     Dosage: 75 MG, CYCLIC (75 MG TABLETS ONCE A DAY BY MOUTH; 21 DAYS ON AND 7 DAYS OFF)
     Route: 048
     Dates: start: 20200604

REACTIONS (6)
  - Seasonal allergy [Unknown]
  - Aphonia [Unknown]
  - Hypersensitivity [Unknown]
  - Oral pruritus [Not Recovered/Not Resolved]
  - Cough [Not Recovered/Not Resolved]
  - Ear pruritus [Not Recovered/Not Resolved]

NARRATIVE: CASE EVENT DATE: 20200609
